FAERS Safety Report 7020290-9 (Version None)
Quarter: 2010Q3

REPORT INFORMATION
  Report Type: 
  Country: None (occurrence: None)
  Receive Date: 20100929
  Receipt Date: 20100916
  Transmission Date: 20110219
  Serious: Yes (Other)
  Sender: FDA-Public Use
  Company Number: US-ELI_LILLY_AND_COMPANY-US201009005046

PATIENT
  Age: 42 Year
  Sex: Male
  Weight: 97.506 kg

DRUGS (1)
  1. ZYPREXA [Suspect]
     Dosage: 5 MG, UNKNOWN

REACTIONS (3)
  - INSOMNIA [None]
  - MALAISE [None]
  - WEIGHT INCREASED [None]
